FAERS Safety Report 4947794-4 (Version None)
Quarter: 2006Q1

REPORT INFORMATION
  Report Type: 
  Country: None (occurrence: None)
  Receive Date: 20060320
  Receipt Date: 20051007
  Transmission Date: 20060701
  Serious: Yes (Other)
  Sender: FDA-Public Use
  Company Number: FR-GLAXOSMITHKLINE-B0397021A

PATIENT
  Age: 33 Year
  Sex: Male
  Weight: 68 kg

DRUGS (6)
  1. ZINNAT [Suspect]
     Dosage: 250MG TWICE PER DAY
     Route: 048
     Dates: start: 20051001, end: 20051006
  2. ZIAGEN [Suspect]
     Indication: HIV INFECTION
     Route: 048
     Dates: start: 20040302, end: 20051007
  3. RETROVIR [Suspect]
     Indication: HIV INFECTION
     Dosage: 300MG TWICE PER DAY
     Route: 048
     Dates: start: 20040302, end: 20051007
  4. REYATAZ [Concomitant]
     Indication: HIV INFECTION
     Route: 048
     Dates: start: 20040302
  5. DOLIPRANE [Concomitant]
     Indication: DRUG USE FOR UNKNOWN INDICATION
     Route: 048
     Dates: start: 20050920
  6. NORVIR [Concomitant]
     Indication: HIV INFECTION
     Route: 048
     Dates: start: 20040302

REACTIONS (4)
  - ALANINE AMINOTRANSFERASE INCREASED [None]
  - ASPARTATE AMINOTRANSFERASE INCREASED [None]
  - BLOOD BILIRUBIN INCREASED [None]
  - JAUNDICE [None]
